FAERS Safety Report 25335394 (Version 4)
Quarter: 2025Q3

REPORT INFORMATION
  Report Type: Spontaneous
  Country: EU (occurrence: EU)
  Receive Date: 20250520
  Receipt Date: 20250810
  Transmission Date: 20251020
  Serious: Yes (Life-Threatening)
  Sender: ALEXION PHARMACEUTICALS
  Company Number: EU-AstraZeneca-CH-00871923A

PATIENT
  Age: 89 Year
  Sex: Female
  Weight: 75.5 kg

DRUGS (1)
  1. LOKELMA [Suspect]
     Active Substance: SODIUM ZIRCONIUM CYCLOSILICATE
     Indication: Hyperkalaemia
     Dates: start: 20240706, end: 20250405

REACTIONS (2)
  - Hypokalaemia [Recovered/Resolved]
  - Off label use [Unknown]

NARRATIVE: CASE EVENT DATE: 20250403
